FAERS Safety Report 10070659 (Version 1)
Quarter: 2014Q2

REPORT INFORMATION
  Report Type: Spontaneous
  Country: US (occurrence: US)
  Receive Date: 20140410
  Receipt Date: 20140410
  Transmission Date: 20141212
  Serious: No
  Sender: FDA-Public Use
  Company Number: US-BAXTER-2014BAX017152

PATIENT
  Sex: Female

DRUGS (2)
  1. DIANEAL LOW CALCIUM [Suspect]
     Indication: PERITONEAL DIALYSIS
     Route: 033
     Dates: start: 201403, end: 201403
  2. DIANEAL LOW CALCIUM [Suspect]
     Route: 033
     Dates: start: 201403

REACTIONS (3)
  - Hypophagia [Unknown]
  - Fluid overload [Recovering/Resolving]
  - Dehydration [Recovering/Resolving]
